FAERS Safety Report 23616550 (Version 1)
Quarter: 2024Q1

REPORT INFORMATION
  Report Type: Spontaneous
  Country: US (occurrence: US)
  Receive Date: 20240311
  Receipt Date: 20240311
  Transmission Date: 20240410
  Serious: Yes (Other)
  Sender: FDA-Public Use
  Company Number: US-ROCHE-3522854

PATIENT
  Age: 82 Year
  Sex: Female

DRUGS (11)
  1. XELODA [Suspect]
     Active Substance: CAPECITABINE
     Indication: Colon cancer
     Dosage: REINITIATED XELODA AT A LOWER DOSE
     Route: 065
     Dates: start: 20180911
  2. XELODA [Suspect]
     Active Substance: CAPECITABINE
     Indication: Metastases to liver
     Route: 065
     Dates: start: 20180918
  3. XELODA [Suspect]
     Active Substance: CAPECITABINE
     Dosage: CYCLE #79 OF XELODA WAS HELD
     Route: 065
     Dates: start: 20230321
  4. TUKYSA [Suspect]
     Active Substance: TUCATINIB
     Indication: Colon cancer
     Route: 065
     Dates: start: 20230921
  5. TUKYSA [Suspect]
     Active Substance: TUCATINIB
     Indication: Metastases to liver
     Dosage: 31/JAN/2024
     Route: 065
  6. HERCEPTIN [Suspect]
     Active Substance: TRASTUZUMAB
     Indication: Colon cancer
     Route: 065
  7. HERCEPTIN [Suspect]
     Active Substance: TRASTUZUMAB
     Indication: Metastases to liver
  8. BEVACIZUMAB [Suspect]
     Active Substance: BEVACIZUMAB
     Indication: Colon cancer
     Route: 065
  9. BEVACIZUMAB [Suspect]
     Active Substance: BEVACIZUMAB
     Indication: Metastases to liver
  10. TESSALON [Concomitant]
     Active Substance: BENZONATATE
  11. CANNABIS SATIVA SUBSP. INDICA TOP [Concomitant]
     Active Substance: CANNABIS SATIVA SUBSP. INDICA TOP
     Indication: Arthritis

REACTIONS (2)
  - Acute kidney injury [Not Recovered/Not Resolved]
  - COVID-19 [Not Recovered/Not Resolved]

NARRATIVE: CASE EVENT DATE: 20231001
